FAERS Safety Report 16312001 (Version 4)
Quarter: 2022Q3

REPORT INFORMATION
  Report Type: Report from Study
  Country: US (occurrence: None)
  Receive Date: 20190515
  Receipt Date: 20220907
  Transmission Date: 20221026
  Serious: Yes (Hospitalization)
  Sender: FDA-Public Use
  Company Number: US-ROCHE-2316778

PATIENT
  Age: 62 Year
  Sex: Male
  Weight: 145.1 kg

DRUGS (3)
  1. OBINUTUZUMAB [Suspect]
     Active Substance: OBINUTUZUMAB
     Indication: Chronic lymphocytic leukaemia
     Dosage: DAY 2 OF CYCLE 2-7
     Route: 042
     Dates: start: 20180906, end: 20190124
  2. IBRUTINIB [Suspect]
     Active Substance: IBRUTINIB
     Indication: Chronic lymphocytic leukaemia
     Route: 048
     Dates: start: 20180809, end: 20190506
  3. LANOXIN [Concomitant]
     Active Substance: DIGOXIN
     Dates: start: 20190501

REACTIONS (3)
  - Dyspnoea [Recovered/Resolved]
  - Hernia [Recovered/Resolved]
  - Chest discomfort [Unknown]

NARRATIVE: CASE EVENT DATE: 20190506
